FAERS Safety Report 16835950 (Version 1)
Quarter: 2019Q3

REPORT INFORMATION
  Report Type: Spontaneous
  Country: NL (occurrence: NL)
  Receive Date: 20190920
  Receipt Date: 20190920
  Transmission Date: 20191005
  Serious: Yes (Other)
  Sender: FDA-Public Use
  Company Number: PHHY2019NL212576

PATIENT
  Age: 3 Year
  Sex: Female
  Weight: 16 kg

DRUGS (2)
  1. CLARITHROMYCIN SANDOZ [Suspect]
     Active Substance: CLARITHROMYCIN
     Indication: IMPETIGO
     Dosage: 2.5 ML, BID (250/5)
     Route: 048
     Dates: start: 20190805
  2. CLARITHROMYCIN SANDOZ [Suspect]
     Active Substance: CLARITHROMYCIN
     Dosage: 2.5 ML, BID (250/5) FOR 7 DAYS
     Route: 048
     Dates: start: 20190816

REACTIONS (5)
  - Oral pain [Recovered/Resolved]
  - Oral discomfort [Recovered/Resolved]
  - Poor quality product administered [Unknown]
  - Product odour abnormal [Recovered/Resolved]
  - Product taste abnormal [Recovered/Resolved]

NARRATIVE: CASE EVENT DATE: 20190805
